FAERS Safety Report 18479737 (Version 3)
Quarter: 2021Q1

REPORT INFORMATION
  Report Type: Report from Study
  Country: AU (occurrence: AU)
  Receive Date: 20201109
  Receipt Date: 20210121
  Transmission Date: 20210419
  Serious: Yes (Hospitalization)
  Sender: FDA-Public Use
  Company Number: AU-PFIZER INC-2019-07046

PATIENT
  Age: 83 Year
  Sex: Male
  Weight: 78 kg

DRUGS (24)
  1. ENCORAFENIB [Suspect]
     Active Substance: ENCORAFENIB
     Dosage: THE SUBJECT DID NOT RECEIVE THE STUDY MEDICATIONS
     Route: 048
     Dates: start: 20191111, end: 20191121
  2. ENCORAFENIB [Suspect]
     Active Substance: ENCORAFENIB
     Dosage: 225 MG, 2X/DAY
     Route: 048
     Dates: start: 20191205, end: 20191212
  3. COVERSYL [PERINDOPRIL ERBUMINE] [Concomitant]
     Active Substance: PERINDOPRIL ERBUMINE
     Indication: HYPERTENSION
     Dosage: 10 MG, DAILY
     Route: 048
     Dates: start: 2014, end: 20191216
  4. DUODART [Concomitant]
     Active Substance: DUTASTERIDE\TAMSULOSIN
     Indication: PROSTATOMEGALY
     Dosage: 1 TABLET, DAILY
     Route: 048
     Dates: start: 2017, end: 20191217
  5. BINIMETINIB [Suspect]
     Active Substance: BINIMETINIB
     Indication: METASTATIC MALIGNANT MELANOMA
     Dosage: 45 MG, 2X/DAY
     Route: 048
     Dates: start: 20191106, end: 20191110
  6. BINIMETINIB [Suspect]
     Active Substance: BINIMETINIB
     Dosage: 30 MG, 2X/DAY
     Route: 048
     Dates: start: 20191122, end: 20191203
  7. BINIMETINIB [Suspect]
     Active Substance: BINIMETINIB
     Dosage: 30 MG, 1X/DAY  (MORNING DOSE), DRUG INTERRUPTED
     Route: 048
     Dates: start: 20191213, end: 20191213
  8. ENCORAFENIB [Suspect]
     Active Substance: ENCORAFENIB
     Dosage: 225 MG, 1X/DAY (MORNING DOSE), DOSING ERROR BY THE SUBJECT
     Route: 048
     Dates: start: 20191204, end: 20191204
  9. DIABEX [Concomitant]
     Active Substance: METFORMIN HYDROCHLORIDE
     Indication: TYPE 2 DIABETES MELLITUS
     Dosage: 500 MG, DAILY
     Route: 048
     Dates: start: 2017
  10. METOCLOPRAMIDE. [Concomitant]
     Active Substance: METOCLOPRAMIDE
     Dosage: 10 MG, 3X/DAY
     Route: 048
     Dates: start: 20191217
  11. HARTMANNS [Concomitant]
     Active Substance: CALCIUM CHLORIDE\POTASSIUM CHLORIDE\SODIUM LACTATE
     Dosage: 1000 ML (ONCE)
     Route: 042
     Dates: start: 20191217, end: 20191217
  12. PARACETAMOL [Concomitant]
     Active Substance: ACETAMINOPHEN
     Indication: HEADACHE
     Dosage: 1 G, AS NEEDED
     Route: 048
     Dates: start: 20191112
  13. ENCORAFENIB [Suspect]
     Active Substance: ENCORAFENIB
     Dosage: 225 MG, 1X/DAY (MORNING DOSE), DRUG INTERRUPTED
     Route: 048
     Dates: start: 20191213, end: 20191213
  14. TEMAZEPAM. [Concomitant]
     Active Substance: TEMAZEPAM
     Dosage: 10 MG, AS NEEDED
     Route: 048
     Dates: start: 20191219
  15. BINIMETINIB [Suspect]
     Active Substance: BINIMETINIB
     Dosage: THE SUBJECT DID NOT RECEIVE THE STUDY MEDICATIONS)
     Route: 048
     Dates: start: 20191111, end: 20191121
  16. ENCORAFENIB [Suspect]
     Active Substance: ENCORAFENIB
     Dosage: 225 MG, 2X/DAY
     Route: 048
     Dates: start: 20191122, end: 20191203
  17. PARACETAMOL [Concomitant]
     Active Substance: ACETAMINOPHEN
     Indication: ABDOMINAL PAIN
  18. BINIMETINIB [Suspect]
     Active Substance: BINIMETINIB
     Dosage: 30 MG, 1X/DAY (MORNING DOSE), DOSING ERROR BY THE SUBJECT
     Route: 048
     Dates: start: 20191204, end: 20191204
  19. BINIMETINIB [Suspect]
     Active Substance: BINIMETINIB
     Dosage: 30 MG, 2X/DAY
     Dates: start: 20191205, end: 20191212
  20. ENCORAFENIB [Suspect]
     Active Substance: ENCORAFENIB
     Indication: METASTATIC MALIGNANT MELANOMA
     Dosage: 300 MG, 2X/DAY
     Route: 048
     Dates: start: 20191106, end: 20191110
  21. COLOXYL WITH SENNA [Concomitant]
     Active Substance: DOCUSATE SODIUM\SENNOSIDES A AND B
     Indication: CONSTIPATION
     Dosage: 2 TABLETS, DAILY
     Route: 048
     Dates: start: 20191115
  22. MOVICOL [Concomitant]
     Active Substance: POLYETHYLENE GLYCOL 3350\POTASSIUM CHLORIDE\SODIUM BICARBONATE\SODIUM CHLORIDE
     Indication: CONSTIPATION
     Dosage: 2 SACHETS, DAILY
     Route: 048
     Dates: start: 20191115
  23. TRICORTONE [Concomitant]
     Indication: PRURITUS
     Dosage: 1 APPLICATION, AS NEEDED
     Route: 061
     Dates: start: 20191109
  24. PERINDOPRIL [Concomitant]
     Active Substance: PERINDOPRIL
     Dosage: 5 MG (ONCE)
     Route: 048
     Dates: start: 20191217, end: 20191217

REACTIONS (1)
  - Dehydration [Recovered/Resolved]

NARRATIVE: CASE EVENT DATE: 20191219
